FAERS Safety Report 23425086 (Version 1)
Quarter: 2024Q1

REPORT INFORMATION
  Report Type: Report from Study
  Country: US (occurrence: US)
  Receive Date: 20240121
  Receipt Date: 20240121
  Transmission Date: 20240410
  Serious: Yes (Death)
  Sender: FDA-Public Use
  Company Number: US-ABBVIE-5598987

PATIENT
  Sex: Male

DRUGS (1)
  1. VENCLEXTA [Suspect]
     Active Substance: VENETOCLAX
     Indication: Product used for unknown indication
     Dosage: FORM STRENGTH: 100 MILLIGRAM?TAKE 1 TABLET BY MOUTH DAILY WITH FOOD AND WATER DAY 1 THROUGH DAY 2...
     Route: 048

REACTIONS (1)
  - Death [Fatal]
